FAERS Safety Report 7717554-X (Version None)
Quarter: 2011Q3

REPORT INFORMATION
  Report Type: 
  Country: None (occurrence: None)
  Receive Date: 20110824
  Receipt Date: 20110815
  Transmission Date: 20111222
  Serious: Yes (Hospitalization)
  Sender: FDA-Public Use
  Company Number: DSU-2011-06007

PATIENT
  Age: 37 Year
  Sex: Male
  Weight: 117.9352 kg

DRUGS (2)
  1. BYSTOLIC [Concomitant]
     Dosage: 10 MG (10 MG, QD), PER ORAL
     Route: 048
  2. WELCHOL [Suspect]
     Indication: BLOOD CHOLESTEROL INCREASED
     Dosage: 3750 MG, PER ORAL
     Route: 048
     Dates: start: 20110101, end: 20110101

REACTIONS (3)
  - RHABDOMYOLYSIS [None]
  - DEHYDRATION [None]
  - DIARRHOEA [None]
